FAERS Safety Report 9723030 (Version 1)
Quarter: 2013Q4

REPORT INFORMATION
  Report Type: Spontaneous
  Country: US (occurrence: US)
  Receive Date: 20131202
  Receipt Date: 20131202
  Transmission Date: 20140711
  Serious: Yes (Other)
  Sender: FDA-Public Use
  Company Number: PHEH2013US023463

PATIENT
  Sex: Male

DRUGS (1)
  1. GILENYA [Suspect]
     Dates: start: 20121220, end: 20130603

REACTIONS (3)
  - Liver function test abnormal [Recovered/Resolved]
  - Alanine aminotransferase increased [Recovered/Resolved]
  - Bilirubin conjugated increased [Recovered/Resolved]
